FAERS Safety Report 10952854 (Version 1)
Quarter: 2015Q1

REPORT INFORMATION
  Report Type: Spontaneous
  Country: US (occurrence: None)
  Receive Date: 20150323
  Receipt Date: 20150323
  Transmission Date: 20150721
  Serious: Yes (Hospitalization, Other)
  Sender: FDA-Public Use
  Company Number: 2015JUB00082

PATIENT
  Age: 26 Year
  Sex: Female

DRUGS (1)
  1. METHYLPREDNISOLONE (METHYLPREDNISOLONE) [Suspect]
     Active Substance: METHYLPREDNISOLONE
     Indication: MIGRAINE
     Route: 042

REACTIONS (6)
  - Stress cardiomyopathy [None]
  - Pulmonary oedema [None]
  - Anaphylactic reaction [None]
  - Urticaria [None]
  - Type I hypersensitivity [None]
  - Respiratory distress [None]
